FAERS Safety Report 10222898 (Version 1)
Quarter: 2014Q2

REPORT INFORMATION
  Report Type: Spontaneous
  Country: US (occurrence: US)
  Receive Date: 20140607
  Receipt Date: 20140607
  Transmission Date: 20141212
  Serious: No
  Sender: FDA-Public Use
  Company Number: US-B.I. PHARMACEUTICALS,INC./RIDGEFIELD-2014-BI-23718BP

PATIENT
  Sex: Male
  Weight: 100 kg

DRUGS (8)
  1. SPIRIVA [Suspect]
     Indication: ASTHMA
     Dosage: 18 MCG
     Route: 055
     Dates: start: 2011
  2. SPIRIVA [Suspect]
     Indication: SEASONAL ALLERGY
  3. ADVAIR [Concomitant]
     Dosage: 4 PUF
     Route: 055
  4. LIPITOR [Concomitant]
     Indication: BLOOD CHOLESTEROL INCREASED
     Dosage: 10 MG
     Route: 048
  5. FINASTERIDE [Concomitant]
     Indication: PROSTATOMEGALY
     Dosage: 5 MG
     Route: 048
  6. ASTELIN [Concomitant]
     Indication: SINUS CONGESTION
     Dosage: 8 PUF
     Route: 045
  7. VITMAINS [Concomitant]
     Route: 048
  8. MINERALS [Concomitant]
     Route: 048

REACTIONS (3)
  - Feeling jittery [Not Recovered/Not Resolved]
  - Asbestosis [Not Recovered/Not Resolved]
  - Off label use [Unknown]
